FAERS Safety Report 22059447 (Version 5)
Quarter: 2023Q2

REPORT INFORMATION
  Report Type: Report from Study
  Country: US (occurrence: US)
  Receive Date: 20230303
  Receipt Date: 20230609
  Transmission Date: 20230722
  Serious: No
  Sender: FDA-Public Use
  Company Number: US-002147023-NVSC2023US048294

PATIENT
  Sex: Female

DRUGS (1)
  1. COSENTYX [Suspect]
     Active Substance: SECUKINUMAB
     Indication: Psoriasis
     Dosage: 300 MG, EVERY 10 WEEKS
     Route: 058
     Dates: start: 2018

REACTIONS (4)
  - Skin lesion [Unknown]
  - Injection site swelling [Unknown]
  - Injection site pain [Unknown]
  - Product use issue [Unknown]
